FAERS Safety Report 7412233-0 (Version None)
Quarter: 2011Q2

REPORT INFORMATION
  Report Type: 
  Country: None (occurrence: None)
  Receive Date: 20110413
  Receipt Date: 20110407
  Transmission Date: 20111010
  Serious: Yes (Hospitalization)
  Sender: FDA-Public Use
  Company Number: IT-ROCHE-755274

PATIENT
  Sex: Female
  Weight: 80 kg

DRUGS (1)
  1. OSELTAMIVIR [Suspect]
     Indication: INFLUENZA
     Dosage: LAST DOSE PRIOR TO SAE 17 JANUARY 2011. DOSAGE FORM:VIALS 6
     Route: 065
     Dates: start: 20110113

REACTIONS (1)
  - ATRIAL FIBRILLATION [None]
